FAERS Safety Report 13637850 (Version 1)
Quarter: 2017Q2

REPORT INFORMATION
  Report Type: Report from Study
  Country: US (occurrence: US)
  Receive Date: 20170609
  Receipt Date: 20170609
  Transmission Date: 20170830
  Serious: Yes (Other)
  Sender: FDA-Public Use
  Company Number: US-AMGEN-USASL2017086505

PATIENT
  Age: 75 Year
  Sex: Female

DRUGS (1)
  1. ENBREL [Suspect]
     Active Substance: ETANERCEPT
     Indication: RHEUMATOID ARTHRITIS
     Dosage: UNK
     Route: 065
     Dates: start: 1998, end: 201612

REACTIONS (8)
  - Drug dose omission [Unknown]
  - Pain [Unknown]
  - Hernia [Unknown]
  - Thrombosis [Unknown]
  - Bedridden [Unknown]
  - Muscular weakness [Unknown]
  - Arthralgia [Unknown]
  - Gastric disorder [Unknown]

NARRATIVE: CASE EVENT DATE: 201612
